FAERS Safety Report 16348335 (Version 3)
Quarter: 2019Q2

REPORT INFORMATION
  Report Type: Spontaneous
  Country: US (occurrence: US)
  Receive Date: 20190523
  Receipt Date: 20190524
  Transmission Date: 20190711
  Serious: Yes (Other)
  Sender: FDA-Public Use
  Company Number: US-RADIUS HEALTH INC.-2019US001717

PATIENT
  Age: 76 Year
  Sex: Female

DRUGS (2)
  1. TYMLOS [Suspect]
     Active Substance: ABALOPARATIDE
     Indication: OSTEOPOROSIS POSTMENOPAUSAL
     Dosage: 80 MCG, QD
     Route: 058
     Dates: start: 20190403, end: 20190417
  2. TYMLOS [Suspect]
     Active Substance: ABALOPARATIDE
     Dosage: 80 MCG, QD
     Route: 058
     Dates: start: 20190516, end: 201905

REACTIONS (9)
  - Procedural pain [Recovering/Resolving]
  - Abdominal discomfort [Unknown]
  - Back pain [Not Recovered/Not Resolved]
  - Nausea [Recovering/Resolving]
  - Product storage error [Not Recovered/Not Resolved]
  - Bladder operation [Recovering/Resolving]
  - Injection site pain [Recovering/Resolving]
  - Urinary tract infection [Recovering/Resolving]
  - Inappropriate schedule of product administration [Unknown]

NARRATIVE: CASE EVENT DATE: 20190403
